FAERS Safety Report 7973711-9 (Version None)
Quarter: 2011Q4

REPORT INFORMATION
  Report Type: 
  Country: None (occurrence: None)
  Receive Date: 20111213
  Receipt Date: 20111213
  Transmission Date: 20120403
  Serious: Yes (Other)
  Sender: FDA-Public Use
  Company Number: None

PATIENT
  Age: 65 Year
  Sex: Male
  Weight: 72.574 kg

DRUGS (1)
  1. CIALIS [Suspect]
     Dosage: 1
     Route: 048
     Dates: start: 20101201, end: 20111210

REACTIONS (4)
  - TINNITUS [None]
  - DEAFNESS UNILATERAL [None]
  - BALANCE DISORDER [None]
  - NO THERAPEUTIC RESPONSE [None]
